FAERS Safety Report 9856318 (Version 1)
Quarter: 2014Q1

REPORT INFORMATION
  Report Type: Report from Study
  Country: FR (occurrence: FR)
  Receive Date: 20140130
  Receipt Date: 20140130
  Transmission Date: 20141002
  Serious: Yes (Hospitalization)
  Sender: FDA-Public Use
  Company Number: FR-ELI_LILLY_AND_COMPANY-FR201401007539

PATIENT
  Age: 60 Year
  Sex: Female
  Weight: 43 kg

DRUGS (5)
  1. PEMETREXED [Suspect]
     Indication: NON-SMALL CELL LUNG CANCER
     Dosage: 710 MG, CYCLICAL
     Route: 042
     Dates: start: 20130705
  2. CISPLATIN [Suspect]
     Indication: NON-SMALL CELL LUNG CANCER
     Dosage: 106 MG, CYCLICAL
     Route: 042
     Dates: start: 20130705
  3. PARACETAMOL [Concomitant]
     Indication: PAIN
     Dosage: UNK
     Dates: start: 201306
  4. ZOMETA [Concomitant]
     Indication: METASTASES TO BONE
     Dosage: 4 MG, QD
     Route: 048
     Dates: start: 20130704
  5. TRAMADOL [Concomitant]
     Indication: PAIN
     Dosage: 150 MG, BID
     Route: 048
     Dates: start: 20130630

REACTIONS (1)
  - General physical health deterioration [Recovered/Resolved]
